FAERS Safety Report 15090240 (Version 1)
Quarter: 2018Q2

REPORT INFORMATION
  Report Type: Spontaneous
  Country: US (occurrence: US)
  Receive Date: 20180608
  Receipt Date: 20180608
  Transmission Date: 20180711
  Serious: Yes (Death)
  Sender: FDA-Public Use
  Company Number: None

PATIENT
  Age: 51 Year
  Sex: Male
  Weight: 65.3 kg

DRUGS (1)
  1. TRABECTEDIN [Suspect]
     Active Substance: TRABECTEDIN
     Indication: SARCOMA
     Route: 042
     Dates: start: 20180521, end: 20180521

REACTIONS (6)
  - Infusion related reaction [None]
  - Acute kidney injury [None]
  - Transaminases increased [None]
  - Blood uric acid increased [None]
  - Treatment failure [None]
  - Respiratory disorder [None]

NARRATIVE: CASE EVENT DATE: 20180521
